FAERS Safety Report 8828255 (Version 4)
Quarter: 2013Q2

REPORT INFORMATION
  Report Type: Spontaneous
  Country: GB (occurrence: GB)
  Receive Date: 20121005
  Receipt Date: 20130419
  Transmission Date: 20140414
  Serious: Yes (Death, Hospitalization, Other)
  Sender: FDA-Public Use
  Company Number: GB-CELGENEUS-167-21880-12091349

PATIENT
  Age: 45 Year
  Sex: Female
  Weight: 71 kg

DRUGS (12)
  1. REVLIMID [Suspect]
     Indication: PRIMARY MEDIASTINAL LARGE B-CELL LYMPHOMA
     Route: 048
     Dates: start: 20120720, end: 20120810
  2. REVLIMID [Suspect]
     Route: 048
     Dates: start: 20120817, end: 20120822
  3. PREDNISOLONE [Concomitant]
     Indication: PRIMARY MEDIASTINAL LARGE B-CELL LYMPHOMA
     Route: 065
     Dates: start: 2012, end: 20120907
  4. PREDNISOLONE [Concomitant]
     Dosage: 15 MILLIGRAM
     Route: 065
  5. PREDNISOLONE [Concomitant]
     Dosage: 50 MILLIGRAM
     Route: 065
  6. SEPTRIN [Concomitant]
     Indication: ANTIFUNGAL PROPHYLAXIS
     Route: 065
  7. CYCLIZINE [Concomitant]
     Indication: NAUSEA
     Dosage: 150 MILLIGRAM
     Route: 065
  8. ZOPICLONE [Concomitant]
     Indication: SEDATION
     Route: 065
  9. DALTEPARIN [Concomitant]
     Indication: THROMBOSIS PROPHYLAXIS
     Dosage: 5000 IU (INTERNATIONAL UNIT)
     Route: 065
  10. ALLOPURINOL [Concomitant]
     Indication: PROPHYLAXIS
     Dosage: 300 MILLIGRAM
     Route: 065
  11. PREGABALIN [Concomitant]
     Indication: PAIN
     Dosage: 150 MILLIGRAM
     Route: 065
  12. LANSOPRAZOLE [Concomitant]
     Indication: DYSPEPSIA
     Dosage: 60 MILLIGRAM
     Route: 065

REACTIONS (4)
  - Primary mediastinal large B-cell lymphoma refractory [Fatal]
  - Tumour flare [Recovered/Resolved]
  - Pleural effusion [Unknown]
  - Lower respiratory tract infection [Not Recovered/Not Resolved]
